FAERS Safety Report 18428886 (Version 3)
Quarter: 2020Q4

REPORT INFORMATION
  Report Type: Report from Study
  Country: CA (occurrence: CA)
  Receive Date: 20201026
  Receipt Date: 20201118
  Transmission Date: 20210114
  Serious: Yes (Hospitalization, Other)
  Sender: FDA-Public Use
  Company Number: CA-BRISTOL-MYERS SQUIBB COMPANY-BMS-2020-088900

PATIENT
  Age: 68 Year
  Sex: Male

DRUGS (1)
  1. NIVOLUMAB [Suspect]
     Active Substance: NIVOLUMAB
     Indication: COLON CANCER
     Dosage: 250 MILLIGRAM, Q2WK
     Route: 042

REACTIONS (3)
  - Myocardial infarction [Unknown]
  - Blood pressure systolic increased [Unknown]
  - Chest pain [Unknown]

NARRATIVE: CASE EVENT DATE: 202010
